FAERS Safety Report 16629678 (Version 3)
Quarter: 2019Q3

REPORT INFORMATION
  Report Type: Spontaneous
  Country: JP (occurrence: JP)
  Receive Date: 20190725
  Receipt Date: 20190813
  Transmission Date: 20191004
  Serious: Yes (Hospitalization, Other)
  Sender: FDA-Public Use
  Company Number: JP-009507513-1904JPN000444J

PATIENT
  Age: 77 Year
  Sex: Male
  Weight: 55 kg

DRUGS (7)
  1. AMLODIPINE [Concomitant]
     Active Substance: AMLODIPINE BESYLATE
     Indication: HYPERTENSION
     Dosage: 5 MILLIGRAM, QD
     Route: 048
  2. FEBURIC [Concomitant]
     Active Substance: FEBUXOSTAT
     Indication: HYPERURICAEMIA
     Dosage: 20 MILLIGRAM, QD
     Route: 048
  3. AMBROXOL HYDROCHLORIDE [Concomitant]
     Active Substance: AMBROXOL HYDROCHLORIDE
     Indication: EMPHYSEMA
     Dosage: 45 MILLIGRAM, QD
     Route: 048
     Dates: start: 20161109
  4. KEYTRUDA [Suspect]
     Active Substance: PEMBROLIZUMAB
     Indication: NON-SMALL CELL LUNG CANCER
     Dosage: 200 MILLIGRAM, Q3W
     Route: 041
     Dates: start: 20180131, end: 20180221
  5. TAKECAB [Concomitant]
     Active Substance: VONOPRAZAN FUMURATE
     Indication: STEROID THERAPY
     Dosage: 10 MILLIGRAM, QD
     Route: 048
     Dates: start: 20180322
  6. NATRIX [Concomitant]
     Active Substance: INDAPAMIDE
     Indication: HYPERTENSION
     Dosage: 1 MILLIGRAM, QD
     Route: 048
     Dates: start: 20180528
  7. KEYTRUDA [Suspect]
     Active Substance: PEMBROLIZUMAB
     Dosage: 200 MILLIGRAM, Q3W
     Route: 041
     Dates: start: 20190213, end: 20190306

REACTIONS (2)
  - Interstitial lung disease [Recovering/Resolving]
  - Lung disorder [Recovered/Resolved]

NARRATIVE: CASE EVENT DATE: 20180319
